FAERS Safety Report 5349938-1 (Version None)
Quarter: 2007Q2

REPORT INFORMATION
  Report Type: 
  Country: None (occurrence: None)
  Receive Date: 20070607
  Receipt Date: 20070529
  Transmission Date: 20071010
  Serious: Yes (Other)
  Sender: FDA-Public Use
  Company Number: US-PFIZER INC-2007044269

PATIENT
  Sex: Male

DRUGS (2)
  1. BEXTRA [Suspect]
     Route: 048
     Dates: start: 20040525, end: 20040529
  2. VIOXX [Suspect]
     Route: 048
     Dates: start: 20040426, end: 20040526

REACTIONS (1)
  - CARDIAC ARREST [None]
